FAERS Safety Report 9605721 (Version 1)
Quarter: 2013Q4

REPORT INFORMATION
  Report Type: Report from Study
  Country: US (occurrence: US)
  Receive Date: 20131008
  Receipt Date: 20131008
  Transmission Date: 20140711
  Serious: Yes (Other)
  Sender: FDA-Public Use
  Company Number: US-TEVA-436175USA

PATIENT
  Age: 37 Year
  Sex: Female

DRUGS (1)
  1. LEVETIRACETAM [Suspect]
     Indication: EPILEPSY
     Dosage: 1000 MILLIGRAM DAILY;

REACTIONS (2)
  - Abortion spontaneous [Unknown]
  - Vaginal haemorrhage [Unknown]
